FAERS Safety Report 8719744 (Version 3)
Quarter: 2012Q4

REPORT INFORMATION
  Report Type: 
  Country: GB (occurrence: GB)
  Receive Date: 20120813
  Receipt Date: 20120910
  Transmission Date: 20130627
  Serious: Yes (Other)
  Sender: FDA-Public Use
  Company Number: PHFR2012GB004428

PATIENT
  Sex: Female

DRUGS (1)
  1. MYFORTIC [Suspect]

REACTIONS (6)
  - Cerebrovascular accident [Unknown]
  - Brain injury [Unknown]
  - Mastication disorder [Unknown]
  - Oral administration complication [Recovering/Resolving]
  - Drug administration error [Unknown]
  - Dysphagia [None]
